FAERS Safety Report 8025364-1 (Version None)
Quarter: 2011Q4

REPORT INFORMATION
  Report Type: 
  Country: None (occurrence: None)
  Receive Date: 20111130
  Receipt Date: 20110722
  Transmission Date: 20120403
  Serious: Yes (Hospitalization, Other)
  Sender: FDA-Public Use
  Company Number: PHHY2011US52170

PATIENT
  Sex: Female

DRUGS (1)
  1. TEKTURNA [Suspect]

REACTIONS (2)
  - DRUG INEFFECTIVE [None]
  - HYPERTENSION [None]
